FAERS Safety Report 7912235-1 (Version None)
Quarter: 2011Q4

REPORT INFORMATION
  Report Type: 
  Country: None (occurrence: None)
  Receive Date: 20111114
  Receipt Date: 20111107
  Transmission Date: 20120403
  Serious: Yes (Other)
  Sender: FDA-Public Use
  Company Number: US-MERCK-1111USA00976

PATIENT
  Age: 61 Year
  Sex: Female

DRUGS (8)
  1. NIASPAN [Concomitant]
     Route: 065
  2. SINGULAIR [Concomitant]
     Route: 065
  3. ZETIA [Suspect]
     Indication: BLOOD CHOLESTEROL
     Route: 048
  4. SIMVASTATIN [Concomitant]
     Route: 065
  5. DIGOXIN [Concomitant]
     Route: 065
  6. EVISTA [Concomitant]
     Route: 065
  7. LASIX [Concomitant]
     Route: 065
  8. COREG [Concomitant]
     Route: 065

REACTIONS (5)
  - CARDIOMYOPATHY [None]
  - ANAEMIA [None]
  - PULMONARY FIBROSIS [None]
  - CORONARY ARTERY DISEASE [None]
  - NEOPLASM MALIGNANT [None]
